FAERS Safety Report 8225562-8 (Version None)
Quarter: 2012Q1

REPORT INFORMATION
  Report Type: 
  Country: None (occurrence: None)
  Receive Date: 20120321
  Receipt Date: 20120313
  Transmission Date: 20120608
  Serious: Yes (Hospitalization)
  Sender: FDA-Public Use
  Company Number: CHPA2012RU002863

PATIENT
  Age: 13 Year
  Sex: Male

DRUGS (1)
  1. PHENYLEPHRINE HYDROCHLORIDE [Suspect]
     Dosage: UNK, UNK
     Route: 048

REACTIONS (2)
  - RASH PAPULAR [None]
  - HYPERSENSITIVITY [None]
